FAERS Safety Report 17108590 (Version 1)
Quarter: 2019Q4

REPORT INFORMATION
  Report Type: Spontaneous
  Country: GB (occurrence: GB)
  Receive Date: 20191204
  Receipt Date: 20191204
  Transmission Date: 20200122
  Serious: Yes (Hospitalization, Other)
  Sender: FDA-Public Use
  Company Number: GB-SA-2019SA082917

PATIENT
  Age: 35 Year
  Sex: Female

DRUGS (10)
  1. PARACETAMOL [Suspect]
     Active Substance: ACETAMINOPHEN
     Indication: BACK PAIN
  2. CALCIUM CARBONATE. [Suspect]
     Active Substance: CALCIUM CARBONATE
     Dosage: LIQUID
  3. CALCIUM CARBONATE\MAGNESIUM CARBONATE\MAGNESIUM TRISILICATE [Suspect]
     Active Substance: CALCIUM CARBONATE\MAGNESIUM CARBONATE\MAGNESIUM TRISILICATE
     Indication: ANTACID THERAPY
     Dosage: 72 DF, QD
     Route: 065
  4. PARACETAMOL [Suspect]
     Active Substance: ACETAMINOPHEN
     Indication: BACK PAIN
     Dosage: 7.5 G, QD
     Route: 065
  5. MAGNESIUM CARBONATE [Suspect]
     Active Substance: MAGNESIUM CARBONATE
     Dosage: UNK UNK, QD
  6. GAVISCON [Suspect]
     Active Substance: ALUMINUM HYDROXIDE\MAGNESIUM CARBONATE
     Indication: PRODUCT USED FOR UNKNOWN INDICATION
     Dosage: 600 ML, QW
     Route: 065
  7. IBUPROFEN. [Suspect]
     Active Substance: IBUPROFEN
     Indication: ANALGESIC THERAPY
  8. SODIUM ALGINATE/SODIUM BICARBONATE [Suspect]
     Active Substance: SODIUM ALGINATE\SODIUM BICARBONATE
     Dosage: 600 ML
  9. IBUPROFEN. [Suspect]
     Active Substance: IBUPROFEN
     Indication: BACK PAIN
     Dosage: 6 G, QD
     Route: 065
  10. CALCIUM CARBONATE. [Suspect]
     Active Substance: CALCIUM CARBONATE
     Indication: GASTROOESOPHAGEAL REFLUX DISEASE
     Dosage: UNK UNK, QD (72)

REACTIONS (21)
  - Food refusal [Recovered/Resolved]
  - Pancreatitis acute [Recovered/Resolved]
  - Milk-alkali syndrome [Recovered/Resolved]
  - Haemoglobin decreased [Recovered/Resolved]
  - Accidental overdose [Unknown]
  - Base excess increased [Recovered/Resolved]
  - White blood cell count increased [Recovered/Resolved]
  - Drug abuse [Unknown]
  - Liver function test abnormal [Recovered/Resolved]
  - Rebound effect [Recovered/Resolved]
  - Self-medication [Unknown]
  - Gastric ulcer [Recovered/Resolved]
  - Abdominal tenderness [Recovered/Resolved]
  - Blood calcium increased [Recovered/Resolved]
  - Intentional overdose [Unknown]
  - Abdominal pain upper [Recovered/Resolved]
  - Overdose [Unknown]
  - Vomiting [Recovered/Resolved]
  - Metabolic alkalosis [Recovered/Resolved]
  - Tachycardia [Recovered/Resolved]
  - Coagulopathy [Recovered/Resolved]
